FAERS Safety Report 6135732-0 (Version None)
Quarter: 2009Q1

REPORT INFORMATION
  Report Type: 
  Country: None (occurrence: None)
  Receive Date: 20090327
  Receipt Date: 20090319
  Transmission Date: 20090719
  Serious: Yes (Other)
  Sender: FDA-Public Use
  Company Number: JP-ABBOTT-09P-087-0562497-01

PATIENT
  Sex: Male

DRUGS (11)
  1. LEUPROLIDE ACETATE [Suspect]
     Indication: SPINAL MUSCULAR ATROPHY
     Route: 058
     Dates: start: 20080212
  2. AMARYL [Concomitant]
     Indication: DIABETES MELLITUS
     Route: 048
     Dates: start: 20010401
  3. VITAMEDIN [Concomitant]
     Indication: SPINAL MUSCULAR ATROPHY
     Route: 048
     Dates: start: 20070401
  4. NEUQUINON [Concomitant]
     Indication: SPINAL MUSCULAR ATROPHY
     Route: 048
     Dates: start: 20070401
  5. ADENOSINE TRIPHOSPHATE, DISODIUM SALT [Concomitant]
     Indication: SPINAL MUSCULAR ATROPHY
     Route: 048
     Dates: start: 20070401
  6. MAGMITT [Concomitant]
     Indication: CONSTIPATION
     Route: 048
     Dates: start: 20050801
  7. CYANOCOBALAMIN [Concomitant]
     Indication: SPINAL MUSCULAR ATROPHY
     Route: 048
     Dates: start: 20070401
  8. MIGLITOL [Concomitant]
     Indication: DIABETES MELLITUS
     Route: 048
     Dates: start: 20071001
  9. UFT [Concomitant]
     Indication: DRUG USE FOR UNKNOWN INDICATION
     Route: 048
     Dates: end: 20080731
  10. UFT [Concomitant]
     Route: 048
     Dates: start: 20081225, end: 20090105
  11. CALCIUM FOLINATE [Concomitant]
     Indication: DRUG USE FOR UNKNOWN INDICATION
     Route: 048
     Dates: start: 20081225, end: 20090105

REACTIONS (1)
  - MALIGNANT NEOPLASM PROGRESSION [None]
